FAERS Safety Report 16504313 (Version 1)
Quarter: 2019Q3

REPORT INFORMATION
  Report Type: Spontaneous
  Country: US (occurrence: US)
  Receive Date: 20190701
  Receipt Date: 20190701
  Transmission Date: 20191004
  Serious: No
  Sender: FDA-Public Use
  Company Number: US-ASTRAZENECA-2019SE93964

PATIENT
  Sex: Female

DRUGS (1)
  1. SYMBICORT [Suspect]
     Active Substance: BUDESONIDE\FORMOTEROL FUMARATE DIHYDRATE
     Dosage: 160MCG/4.5MCG, INHALATION, UNKNOWN FREQUENCY UNKNOWN
     Route: 055
     Dates: start: 201903

REACTIONS (3)
  - Device issue [Unknown]
  - Device failure [Unknown]
  - Limb injury [Unknown]
